FAERS Safety Report 25005344 (Version 1)
Quarter: 2025Q1

REPORT INFORMATION
  Report Type: Spontaneous
  Country: US (occurrence: US)
  Receive Date: 20250224
  Receipt Date: 20250224
  Transmission Date: 20250409
  Serious: No
  Sender: BAUSCH AND LOMB
  Company Number: US-BAUSCHBL-2025BNL002786

PATIENT
  Sex: Female

DRUGS (1)
  1. XIIDRA [Suspect]
     Active Substance: LIFITEGRAST
     Indication: Product used for unknown indication
     Route: 047

REACTIONS (9)
  - Headache [Unknown]
  - Migraine [Unknown]
  - Visual impairment [Unknown]
  - Pain [Unknown]
  - Ear pain [Unknown]
  - Synovial cyst [Unknown]
  - Inflammatory marker increased [Unknown]
  - Pain in extremity [Unknown]
  - Finger deformity [Unknown]
